FAERS Safety Report 23180979 (Version 2)
Quarter: 2024Q1

REPORT INFORMATION
  Report Type: Report from Study
  Country: US (occurrence: US)
  Receive Date: 20231114
  Receipt Date: 20240202
  Transmission Date: 20240410
  Serious: Yes (Hospitalization)
  Sender: FDA-Public Use
  Company Number: US-TEVA-2023-US-2946217

PATIENT
  Age: 12 Year
  Sex: Female
  Weight: 39.4 kg

DRUGS (10)
  1. METHOTREXATE [Suspect]
     Active Substance: METHOTREXATE
     Indication: Acute lymphocytic leukaemia
     Dosage: DOSAGE TEXT: 25 MILLIGRAM, WEEKLY EXCEPT ON WEEK OF LP; ORAL USE
     Route: 048
     Dates: start: 20230912, end: 20231012
  2. METHOTREXATE [Suspect]
     Active Substance: METHOTREXATE
     Indication: Acute lymphocytic leukaemia
     Route: 048
     Dates: start: 20231120
  3. VINCRISTINE [Suspect]
     Active Substance: VINCRISTINE
     Indication: Acute lymphocytic leukaemia
     Dosage: DOSAGE TEXT: 1.5 MILLIGRAM/SQ. METER(1.8MG) ONCE ON DAYS 1, 29, 57; INTRAVENOUS USE, LAST DOSE ON...
     Route: 042
     Dates: start: 20230905
  4. METHOTREXATE [Suspect]
     Active Substance: METHOTREXATE
     Indication: Acute lymphocytic leukaemia
     Dosage: DOSAGE TEXT: 15 MILLIGRAM, DAYS 1 AND 29 OF CYCLES 1 AND 2; INTRATHECAL USE, LAST DOSE ON 3-OCT-2023
     Route: 037
     Dates: start: 20230905
  5. PREDNISONE [Suspect]
     Active Substance: PREDNISONE
     Indication: Acute lymphocytic leukaemia
     Dosage: DOSAGE TEXT: 25 MILLIGRAM, BID ON DAYS 1-5, 29-33, AND 59-61; ORAL USE
     Route: 048
     Dates: start: 20230905
  6. MERCAPTOPURINE [Suspect]
     Active Substance: MERCAPTOPURINE
     Indication: Acute lymphocytic leukaemia
     Dosage: DOSAGE TEXT: 75 MILLIGRAM/SQ. METER, QD,- 100MG FOR 5 DAYS/WEEK, AND 75MG FOR 2 DAYS/WEEK; ORAL USE
     Route: 048
     Dates: start: 20230905
  7. MERCAPTOPURINE [Suspect]
     Active Substance: MERCAPTOPURINE
     Indication: Acute lymphocytic leukaemia
     Route: 048
     Dates: start: 20231120
  8. ZOFRAN [Concomitant]
     Active Substance: ONDANSETRON HYDROCHLORIDE
     Dosage: ONGOING
     Dates: start: 20221018
  9. RUXOLITINIB [Suspect]
     Active Substance: RUXOLITINIB
     Route: 048
     Dates: start: 20231023
  10. RUXOLITINIB [Suspect]
     Active Substance: RUXOLITINIB
     Dosage: FOR 14 DAYS, DAY 1-14, 29 TO 42, 57-70
     Route: 048
     Dates: start: 20230905, end: 20231012

REACTIONS (3)
  - Blood bilirubin increased [Recovered/Resolved]
  - Febrile neutropenia [Recovered/Resolved]
  - Cholestasis [Recovered/Resolved with Sequelae]

NARRATIVE: CASE EVENT DATE: 20231013
